FAERS Safety Report 6321772-5 (Version None)
Quarter: 2009Q3

REPORT INFORMATION
  Report Type: 
  Country: None (occurrence: None)
  Receive Date: 20090821
  Receipt Date: 20090821
  Transmission Date: 20100115
  Serious: Yes (Other)
  Sender: FDA-Public Use
  Company Number: None

PATIENT
  Sex: Female
  Weight: 69.8539 kg

DRUGS (2)
  1. JANUVIA [Suspect]
     Dates: start: 20090805, end: 20090810
  2. GLUMETZA [Concomitant]

REACTIONS (1)
  - MYODESOPSIA [None]
